FAERS Safety Report 6788261-5 (Version None)
Quarter: 2010Q2

REPORT INFORMATION
  Report Type: 
  Country: None (occurrence: None)
  Receive Date: 20100623
  Receipt Date: 20080208
  Transmission Date: 20101027
  Serious: No
  Sender: FDA-Public Use
  Company Number: US-PFIZER INC-2008012584

PATIENT
  Sex: Female
  Weight: 90 kg

DRUGS (6)
  1. NICOTROL [Suspect]
     Indication: SMOKING CESSATION THERAPY
     Route: 050
     Dates: start: 20080201, end: 20080208
  2. LIPITOR [Concomitant]
     Indication: BLOOD CHOLESTEROL INCREASED
  3. NORVASC [Concomitant]
     Indication: HYPERTENSION
  4. METOPROLOL TARTRATE [Concomitant]
  5. NASONEX [Concomitant]
  6. EFFEXOR [Concomitant]
     Indication: SLEEP DISORDER

REACTIONS (3)
  - HEADACHE [None]
  - LACRIMATION INCREASED [None]
  - NASAL DISCOMFORT [None]
